FAERS Safety Report 17991168 (Version 1)
Quarter: 2020Q3

REPORT INFORMATION
  Report Type: Spontaneous
  Country: US (occurrence: US)
  Receive Date: 20200707
  Receipt Date: 20200707
  Transmission Date: 20201103
  Serious: No
  Sender: FDA-Public Use
  Company Number: US-PFIZER INC-2020238024

PATIENT
  Age: 75 Year
  Sex: Female

DRUGS (2)
  1. IBRANCE [Suspect]
     Active Substance: PALBOCICLIB
     Dosage: 125 MG
     Dates: start: 2020
  2. IBRANCE [Suspect]
     Active Substance: PALBOCICLIB
     Indication: NEOPLASM MALIGNANT
     Dosage: 1 DF, CYCLIC (DAILY FOR 28 DAYS ON AND THEN HAVE 1 WEEK OFF)
     Dates: start: 20200618, end: 2020

REACTIONS (2)
  - Dysphagia [Unknown]
  - Product use complaint [Unknown]

NARRATIVE: CASE EVENT DATE: 2020
